FAERS Safety Report 17629460 (Version 2)
Quarter: 2020Q4

REPORT INFORMATION
  Report Type: Spontaneous
  Country: IT (occurrence: IT)
  Receive Date: 20200406
  Receipt Date: 20201012
  Transmission Date: 20210113
  Serious: Yes (Hospitalization, Other)
  Sender: FDA-Public Use
  Company Number: IT-LUPIN PHARMACEUTICALS INC.-2020-01588

PATIENT
  Sex: Male

DRUGS (4)
  1. BETAMETHASONE. [Suspect]
     Active Substance: BETAMETHASONE
     Indication: BACK PAIN
     Dosage: 4 MILLIGRAM, QD (INJECTION VIAL)
     Route: 042
  2. THIOCOLCHICOSIDE [Concomitant]
     Active Substance: THIOCOLCHICOSIDE
     Indication: BACK PAIN
     Dosage: 4 MILLIGRAM, QD (VIAL)
     Route: 030
  3. BETAMETHASONE. [Suspect]
     Active Substance: BETAMETHASONE
     Dosage: UNK, RE-ADMINISTRATION OF BETAMETHASONE
     Route: 042
  4. DICLOFENAC SODIUM. [Concomitant]
     Active Substance: DICLOFENAC SODIUM
     Indication: BACK PAIN
     Dosage: 75 MILLIGRAM, QD (VIAL)
     Route: 030

REACTIONS (3)
  - Type IV hypersensitivity reaction [Recovered/Resolved]
  - Steroid withdrawal syndrome [Recovered/Resolved]
  - Drug withdrawal headache [Recovered/Resolved]
